FAERS Safety Report 5728968-1 (Version None)
Quarter: 2008Q2

REPORT INFORMATION
  Report Type: 
  Country: None (occurrence: None)
  Receive Date: 20080506
  Receipt Date: 20080425
  Transmission Date: 20081010
  Serious: Yes (Hospitalization)
  Sender: FDA-Public Use
  Company Number: JP-MERCK-0804USA06517

PATIENT
  Age: 85 Year
  Sex: Male

DRUGS (2)
  1. PRIMAXIN [Suspect]
     Indication: PYREXIA
     Route: 041
     Dates: start: 20080322, end: 20080403
  2. LASIX [Suspect]
     Route: 048
     Dates: start: 20080324, end: 20080416

REACTIONS (1)
  - PNEUMONIA [None]
